FAERS Safety Report 21178444 (Version 1)
Quarter: 2022Q3

REPORT INFORMATION
  Report Type: Spontaneous
  Country: CA (occurrence: CA)
  Receive Date: 20220805
  Receipt Date: 20220805
  Transmission Date: 20221027
  Serious: Yes (Other)
  Sender: FDA-Public Use
  Company Number: CA-VIIV HEALTHCARE LIMITED-CA2022AMR112754

PATIENT
  Age: 43 Year
  Sex: Male

DRUGS (2)
  1. RILPIVIRINE [Suspect]
     Active Substance: RILPIVIRINE
     Indication: HIV infection
     Dosage: UNK, 600MG/300MG
     Route: 030
     Dates: start: 20220722
  2. CABOTEGRAVIR [Suspect]
     Active Substance: CABOTEGRAVIR
     Indication: HIV infection
     Dosage: UNK, 600MG/300MG
     Route: 030
     Dates: start: 20220722

REACTIONS (5)
  - Suicidal ideation [Unknown]
  - Injection site pain [Not Recovered/Not Resolved]
  - Sleep disorder due to a general medical condition [Unknown]
  - Mobility decreased [Unknown]
  - Arthralgia [Not Recovered/Not Resolved]

NARRATIVE: CASE EVENT DATE: 20220701
